FAERS Safety Report 10200874 (Version 2)
Quarter: 2014Q2

REPORT INFORMATION
  Report Type: Spontaneous
  Country: FR (occurrence: FR)
  Receive Date: 20140528
  Receipt Date: 20140604
  Transmission Date: 20141212
  Serious: Yes (Other)
  Sender: FDA-Public Use
  Company Number: FR-ASTELLAS-2014EU005828

PATIENT
  Age: 85 Year
  Sex: Female

DRUGS (1)
  1. VESICARE [Suspect]
     Indication: INCONTINENCE
     Dosage: UNK, UNKNOWN FREQ.
     Route: 048

REACTIONS (5)
  - Syncope [Recovered/Resolved]
  - Palpitations [Not Recovered/Not Resolved]
  - Tachycardia [Recovered/Resolved]
  - Asthenia [Recovered/Resolved]
  - Vomiting [Recovered/Resolved]
